FAERS Safety Report 9633106 (Version 1)
Quarter: 2013Q4

REPORT INFORMATION
  Report Type: Spontaneous
  Country: FR (occurrence: FR)
  Receive Date: 20131018
  Receipt Date: 20131018
  Transmission Date: 20140711
  Serious: Yes (Hospitalization)
  Sender: FDA-Public Use
  Company Number: FR-ROCHE-1290676

PATIENT
  Age: 55 Year
  Sex: Female

DRUGS (5)
  1. AVASTIN [Suspect]
     Indication: OVARIAN CANCER
     Dosage: 6 CYCLES
     Route: 042
  2. AVASTIN [Suspect]
     Dosage: MAINTENANCE THERAPY: 25 MG/ML FOR 15 MONTHS
     Route: 042
  3. SIMVASTATINE [Suspect]
     Route: 048
  4. CARBOPLATIN [Concomitant]
     Route: 065
  5. TAXOL [Concomitant]
     Route: 065

REACTIONS (1)
  - Rhabdomyolysis [Recovering/Resolving]
